FAERS Safety Report 25377612 (Version 1)
Quarter: 2025Q2

REPORT INFORMATION
  Report Type: Spontaneous
  Country: CN (occurrence: CN)
  Receive Date: 20250530
  Receipt Date: 20250530
  Transmission Date: 20250717
  Serious: Yes (Life-Threatening, Hospitalization)
  Sender: GE HEALTHCARE
  Company Number: None

PATIENT
  Age: 54 Year
  Sex: Male
  Weight: 80 kg

DRUGS (4)
  1. OMNIPAQUE [Suspect]
     Active Substance: IOHEXOL
     Indication: Angiocardiogram
     Route: 013
     Dates: start: 20250508, end: 20250508
  2. OMNIPAQUE [Suspect]
     Active Substance: IOHEXOL
     Indication: Coronary arterial stent insertion
  3. OMNIPAQUE [Suspect]
     Active Substance: IOHEXOL
     Indication: Coronary angioplasty
  4. IRBESARTAN [Concomitant]
     Active Substance: IRBESARTAN
     Dates: start: 20250505

REACTIONS (3)
  - Hypocalcaemia [Recovering/Resolving]
  - Hypokalaemia [Recovering/Resolving]
  - Anaphylactic shock [Recovering/Resolving]

NARRATIVE: CASE EVENT DATE: 20250508
